FAERS Safety Report 8298817-9 (Version None)
Quarter: 2012Q1

REPORT INFORMATION
  Report Type: 
  Country: None (occurrence: None)
  Receive Date: 20120323
  Receipt Date: 20091124
  Transmission Date: 20120608
  Serious: Yes (Disabling, Other)
  Sender: FDA-Public Use
  Company Number: PHEH2009US16021

PATIENT
  Age: 29 Year
  Sex: Female
  Weight: 58 kg

DRUGS (1)
  1. TOBI [Suspect]
     Dosage: 300MG/5ML, INHALATION
     Route: 055

REACTIONS (1)
  - BRONCHOSPASM [None]
